FAERS Safety Report 4641190-5 (Version None)
Quarter: 2005Q2

REPORT INFORMATION
  Report Type: 
  Country: None (occurrence: None)
  Receive Date: 20050421
  Receipt Date: 20050418
  Transmission Date: 20051028
  Serious: Yes (Other)
  Sender: FDA-Public Use
  Company Number: 200511192JP

PATIENT
  Sex: 0

DRUGS (3)
  1. LASIX [Suspect]
     Route: 041
  2. ANAESTHETICS [Concomitant]
  3. ANTIBIOTICS [Concomitant]

REACTIONS (2)
  - ALANINE AMINOTRANSFERASE INCREASED [None]
  - ASPARTATE AMINOTRANSFERASE INCREASED [None]
